FAERS Safety Report 18706929 (Version 2)
Quarter: 2021Q1

REPORT INFORMATION
  Report Type: Spontaneous
  Country: US (occurrence: US)
  Receive Date: 20210106
  Receipt Date: 20210304
  Transmission Date: 20210419
  Serious: No
  Sender: FDA-Public Use
  Company Number: US-MYLANLABS-2020M1101894

PATIENT
  Sex: Female
  Weight: 52 kg

DRUGS (2)
  1. METHOTREXATE (METHOTREXATE SODIUM) [Suspect]
     Active Substance: METHOTREXATE SODIUM
     Indication: SYSTEMIC LUPUS ERYTHEMATOSUS
     Dosage: 15 MG, QW (TAKE SIX TABLETS ONCE WEEKLY? SATURDAY NIGHTS)
     Route: 048
  2. METHOTREXATE (METHOTREXATE SODIUM) [Suspect]
     Active Substance: METHOTREXATE SODIUM
     Indication: RHEUMATOID ARTHRITIS

REACTIONS (3)
  - Nausea [Not Recovered/Not Resolved]
  - Cold sweat [Not Recovered/Not Resolved]
  - Therapeutic product effect increased [Not Recovered/Not Resolved]
